FAERS Safety Report 23019710 (Version 1)
Quarter: 2023Q4

REPORT INFORMATION
  Report Type: Report from Study
  Country: US (occurrence: US)
  Receive Date: 20231003
  Receipt Date: 20231003
  Transmission Date: 20240109
  Serious: No
  Sender: FDA-Public Use
  Company Number: US-drreddys-SPO/USA/23/0175519

PATIENT
  Age: 1 Year
  Sex: Female
  Weight: 7.12 kg

DRUGS (3)
  1. SAPROPTERIN DIHYDROCHLORIDE [Suspect]
     Active Substance: SAPROPTERIN DIHYDROCHLORIDE
     Indication: Product used for unknown indication
     Dosage: TOOK ONE AND HALF PACK ORAL
  2. AMOXICILLIN [Concomitant]
     Active Substance: AMOXICILLIN
     Indication: Product used for unknown indication
  3. PENICILLIN [Concomitant]
     Active Substance: PENICILLIN
     Indication: Product used for unknown indication

REACTIONS (1)
  - Adverse event [Unknown]
